FAERS Safety Report 10211475 (Version 5)
Quarter: 2015Q1

REPORT INFORMATION
  Report Type: Report from Study
  Country: DE (occurrence: DE)
  Receive Date: 20140602
  Receipt Date: 20150123
  Transmission Date: 20150720
  Serious: Yes (Other)
  Sender: FDA-Public Use
  Company Number: DE-PFIZER INC-2014141833

PATIENT
  Age: 70 Year
  Sex: Male

DRUGS (13)
  1. MABTHERA [Suspect]
     Active Substance: RITUXIMAB
     Indication: DIFFUSE LARGE B-CELL LYMPHOMA
     Dosage: 693.75 MG, UNK
     Route: 042
     Dates: start: 20140501
  2. CYTARABINE. [Suspect]
     Active Substance: CYTARABINE
     Indication: DIFFUSE LARGE B-CELL LYMPHOMA
     Dosage: 7400 MG, UNK
     Route: 042
     Dates: start: 20140503
  3. PANTOPRAZOLE [Concomitant]
     Active Substance: PANTOPRAZOLE SODIUM
     Dosage: 80 MG, DAILY
     Dates: start: 20140424
  4. SPIRONOLACTONE. [Concomitant]
     Active Substance: SPIRONOLACTONE
     Dosage: 100 MG, DAILY
     Dates: start: 20140428
  5. CASPOFUNGIN [Concomitant]
     Active Substance: CASPOFUNGIN
     Indication: OESOPHAGEAL CANDIDIASIS
     Dosage: 70 MG, DAILY
     Route: 042
     Dates: start: 20140508, end: 20140508
  6. CASPOFUNGIN [Concomitant]
     Active Substance: CASPOFUNGIN
     Dosage: 50 MG, DAILY
     Route: 042
     Dates: start: 20140509
  7. TORISEL [Suspect]
     Active Substance: TEMSIROLIMUS
     Indication: DIFFUSE LARGE B-CELL LYMPHOMA
     Dosage: 50 MG, CYCLIC ON DAYS 1 AND 8
     Route: 042
     Dates: start: 20140430
  8. CISPLATIN. [Suspect]
     Active Substance: CISPLATIN
     Indication: DIFFUSE LARGE B-CELL LYMPHOMA
     Dosage: 185 MG, UNK
     Route: 042
     Dates: start: 20140502
  9. FUROSEMID [Concomitant]
     Active Substance: FUROSEMIDE
     Dosage: 40 MG, DAILY
     Dates: start: 20140424
  10. ALLOPURINOL. [Concomitant]
     Active Substance: ALLOPURINOL
     Dosage: 100 MG, DAILY
     Dates: start: 20140504
  11. ENOXAPARIN [Concomitant]
     Active Substance: ENOXAPARIN
     Dosage: 40 MG, DAILY
     Dates: start: 20140424
  12. DEXAMETHASONE. [Suspect]
     Active Substance: DEXAMETHASONE
     Indication: DIFFUSE LARGE B-CELL LYMPHOMA
     Dosage: 40 MG, UNK
     Route: 042
     Dates: start: 20140502
  13. AUGMENTIN [Concomitant]
     Active Substance: AMOXICILLIN\CLAVULANATE POTASSIUM
     Dosage: 875/125 MG DAILY
     Dates: start: 20140502, end: 20140512

REACTIONS (1)
  - Left ventricular dysfunction [Recovered/Resolved]

NARRATIVE: CASE EVENT DATE: 20140509
